FAERS Safety Report 9504885 (Version 3)
Quarter: 2014Q1

REPORT INFORMATION
  Report Type: Report from Study
  Country: JP (occurrence: JP)
  Receive Date: 20130906
  Receipt Date: 20140204
  Transmission Date: 20141002
  Serious: Yes (Death, Life-Threatening, Hospitalization, Disabling, Other)
  Sender: FDA-Public Use
  Company Number: JP-B.I. PHARMACEUTICALS,INC./RIDGEFIELD-2013-BI-27584NB

PATIENT
  Age: 68 Year
  Sex: Male
  Weight: 60 kg

DRUGS (8)
  1. PRADAXA [Suspect]
     Indication: CEREBROVASCULAR ACCIDENT PROPHYLAXIS
     Dosage: 220 MG
     Route: 048
     Dates: start: 20120306, end: 20120919
  2. SYMMETREL [Suspect]
     Indication: PRODUCT USED FOR UNKNOWN INDICATION
     Dosage: 100 MG
     Route: 048
     Dates: start: 20120824, end: 20120919
  3. E KEPPRA [Suspect]
     Indication: PRODUCT USED FOR UNKNOWN INDICATION
     Dosage: 1000 MG
     Route: 048
     Dates: start: 20120907, end: 20120919
  4. TOPINA [Suspect]
     Indication: PRODUCT USED FOR UNKNOWN INDICATION
     Dosage: 100 MG
     Route: 048
     Dates: start: 20120907, end: 20120919
  5. TANATRIL / IMIDAPRIL HYDROCHLORIDE [Concomitant]
     Dosage: 5 MG
     Route: 048
     Dates: start: 20120306, end: 20120919
  6. MAGLAX / MAGNESIUM OXIDE [Concomitant]
     Dosage: 990 MG
     Route: 048
     Dates: end: 20120919
  7. MUCOSTA / REBAMIPIDE [Concomitant]
     Dosage: 300 MG
     Route: 048
     Dates: end: 20120919
  8. RIVASTACH / RIVASTIGMINE [Concomitant]
     Dosage: 18 MG
     Route: 062
     Dates: end: 20120919

REACTIONS (4)
  - Cardiac arrest [Fatal]
  - Drug interaction [Recovered/Resolved with Sequelae]
  - Convulsion [Recovered/Resolved]
  - Parkinsonism [Recovered/Resolved]
